FAERS Safety Report 8000073-3 (Version None)
Quarter: 2011Q4

REPORT INFORMATION
  Report Type: 
  Country: None (occurrence: None)
  Receive Date: 20111220
  Receipt Date: 20111220
  Transmission Date: 20120403
  Serious: Yes (Hospitalization, Other)
  Sender: FDA-Public Use
  Company Number: None

PATIENT
  Age: 81 Year
  Sex: Male
  Weight: 66.2252 kg

DRUGS (1)
  1. PREDNISONE TAB [Suspect]
     Dosage: SEE 5

REACTIONS (7)
  - OROPHARYNGEAL PAIN [None]
  - NERVOUSNESS [None]
  - ARTHRALGIA [None]
  - ABNORMAL SENSATION IN EYE [None]
  - OEDEMA PERIPHERAL [None]
  - ASTHENIA [None]
  - DIPLOPIA [None]
